FAERS Safety Report 14484351 (Version 6)
Quarter: 2022Q4

REPORT INFORMATION
  Report Type: Spontaneous
  Country: US (occurrence: None)
  Receive Date: 20180205
  Receipt Date: 20221020
  Transmission Date: 20230113
  Serious: Yes (Life-Threatening, Hospitalization, Other)
  Sender: FDA-Public Use
  Company Number: 2018SE12552

PATIENT
  Age: 23698 Day
  Sex: Male
  Weight: 104.3 kg

DRUGS (87)
  1. PRILOSEC [Suspect]
     Active Substance: OMEPRAZOLE MAGNESIUM
     Indication: Gastrooesophageal reflux disease
     Route: 048
     Dates: start: 199907, end: 200810
  2. PRILOSEC [Suspect]
     Active Substance: OMEPRAZOLE MAGNESIUM
     Indication: Gastrooesophageal reflux disease
     Route: 048
     Dates: start: 19900722, end: 19991115
  3. PRILOSEC [Suspect]
     Active Substance: OMEPRAZOLE MAGNESIUM
     Indication: Gastrooesophageal reflux disease
     Route: 048
     Dates: start: 19990707
  4. PRILOSEC [Suspect]
     Active Substance: OMEPRAZOLE MAGNESIUM
     Indication: Gastrooesophageal reflux disease
     Route: 048
     Dates: start: 20001113
  5. PRILOSEC [Suspect]
     Active Substance: OMEPRAZOLE MAGNESIUM
     Indication: Gastrooesophageal reflux disease
     Route: 048
     Dates: start: 20011002
  6. PRILOSEC [Suspect]
     Active Substance: OMEPRAZOLE MAGNESIUM
     Indication: Gastrooesophageal reflux disease
     Route: 048
     Dates: start: 19900722, end: 200810
  7. PRILOSEC [Suspect]
     Active Substance: OMEPRAZOLE MAGNESIUM
     Indication: Gastrooesophageal reflux disease
     Dosage: GENERIC
     Route: 065
     Dates: start: 2018
  8. PRILOSEC OTC [Suspect]
     Active Substance: OMEPRAZOLE MAGNESIUM
     Indication: Gastrooesophageal reflux disease
     Route: 048
     Dates: start: 201112, end: 201801
  9. PRILOSEC OTC [Suspect]
     Active Substance: OMEPRAZOLE MAGNESIUM
     Indication: Gastrooesophageal reflux disease
     Route: 048
     Dates: start: 201112
  10. PRILOSEC OTC [Suspect]
     Active Substance: OMEPRAZOLE MAGNESIUM
     Indication: Gastrooesophageal reflux disease
     Route: 048
     Dates: start: 20111104
  11. PRILOSEC OTC [Suspect]
     Active Substance: OMEPRAZOLE MAGNESIUM
     Indication: Gastrooesophageal reflux disease
     Route: 048
     Dates: start: 200811, end: 2011
  12. PROTONIX [Suspect]
     Active Substance: PANTOPRAZOLE SODIUM
     Indication: Gastrooesophageal reflux disease
     Route: 065
     Dates: start: 2011
  13. PROTONIX [Suspect]
     Active Substance: PANTOPRAZOLE SODIUM
     Indication: Gastrooesophageal reflux disease
     Route: 065
     Dates: start: 20111108
  14. PROTONIX [Suspect]
     Active Substance: PANTOPRAZOLE SODIUM
     Indication: Gastrooesophageal reflux disease
     Route: 048
  15. PROTONIX [Suspect]
     Active Substance: PANTOPRAZOLE SODIUM
     Indication: Gastrooesophageal reflux disease
     Route: 065
     Dates: start: 2006, end: 2011
  16. ASPIRIN [Concomitant]
     Active Substance: ASPIRIN
     Indication: Cardiac disorder
     Dates: start: 200606
  17. ACETYLSALICYLIC ACID/DIPHENYLPYRALINE HYDROCHLORIDE/TETRACYCLINE HYDRO [Concomitant]
  18. TRIMOX [Concomitant]
     Active Substance: AMOXICILLIN
  19. NYSTATIN [Concomitant]
     Active Substance: NYSTATIN
  20. PROPULSID [Concomitant]
     Active Substance: CISAPRIDE
  21. ACRON [Concomitant]
  22. MECLIZINE [Concomitant]
     Active Substance: MECLIZINE HYDROCHLORIDE
  23. ISOSORBIDE [Concomitant]
     Active Substance: ISOSORBIDE
     Indication: Blood pressure measurement
     Dates: start: 2012
  24. LIPITOR [Concomitant]
     Active Substance: ATORVASTATIN CALCIUM
  25. NEURONTIN [Concomitant]
     Active Substance: GABAPENTIN
  26. LISINOPRIL [Concomitant]
     Active Substance: LISINOPRIL
     Indication: Blood pressure measurement
     Dates: start: 2005, end: 2011
  27. METOPROLOL TARTRATE [Concomitant]
     Active Substance: METOPROLOL TARTRATE
     Indication: Blood pressure measurement
     Dates: start: 200709, end: 201005
  28. CEPHALEXIN [Concomitant]
     Active Substance: CEPHALEXIN
  29. METFORMIN [Concomitant]
     Active Substance: METFORMIN HYDROCHLORIDE
     Indication: Diabetes mellitus
     Dates: start: 2009, end: 2014
  30. FUROSEMIDE [Concomitant]
     Active Substance: FUROSEMIDE
     Indication: Fluid retention
     Dates: start: 201004, end: 201212
  31. CARVEDILOL [Concomitant]
     Active Substance: CARVEDILOL
  32. ENOXCEPARIN [Concomitant]
  33. ALLOPURINOL [Concomitant]
     Active Substance: ALLOPURINOL
     Indication: Gout
     Dates: start: 2000
  34. CELEXA [Concomitant]
     Active Substance: CITALOPRAM HYDROBROMIDE
  35. KLONOPIN [Concomitant]
     Active Substance: CLONAZEPAM
  36. FLONASE [Concomitant]
     Active Substance: FLUTICASONE PROPIONATE
  37. AMARYL [Concomitant]
     Active Substance: GLIMEPIRIDE
  38. IMDUR [Concomitant]
     Active Substance: ISOSORBIDE MONONITRATE
  39. PRAVACHOL [Concomitant]
     Active Substance: PRAVASTATIN SODIUM
  40. ONDANSETRON [Concomitant]
     Active Substance: ONDANSETRON
  41. DEXILANT [Concomitant]
     Active Substance: DEXLANSOPRAZOLE
  42. INSULIN LISPRO [Concomitant]
     Active Substance: INSULIN LISPRO
  43. DIFLUCAN [Concomitant]
     Active Substance: FLUCONAZOLE
  44. LOTRISONE [Concomitant]
     Active Substance: BETAMETHASONE DIPROPIONATE\CLOTRIMAZOLE
  45. MIRALAX [Concomitant]
     Active Substance: POLYETHYLENE GLYCOL 3350
  46. TORSEMIDE [Concomitant]
     Active Substance: TORSEMIDE
     Indication: Fluid retention
  47. DOCUSATE SODIUM [Concomitant]
     Active Substance: DOCUSATE SODIUM
  48. RANITIDINE [Concomitant]
     Active Substance: RANITIDINE
  49. GLIPIZIDE [Concomitant]
     Active Substance: GLIPIZIDE
  50. LOVENOX [Concomitant]
     Active Substance: ENOXAPARIN SODIUM
  51. NITROGLYCERIN [Concomitant]
     Active Substance: NITROGLYCERIN
     Indication: Cardiac disorder
     Dates: start: 2006
  52. NOVOLOG [Concomitant]
     Active Substance: INSULIN ASPART
  53. HYDROCHLOROTHIAZIDE [Concomitant]
     Active Substance: HYDROCHLOROTHIAZIDE
  54. BENAZEPRIL [Concomitant]
     Active Substance: BENAZEPRIL HYDROCHLORIDE
  55. WARFARIN [Concomitant]
     Active Substance: WARFARIN
     Indication: Thrombosis
  56. CIPROFLOXACIN [Concomitant]
     Active Substance: CIPROFLOXACIN
     Indication: Infection
     Dates: start: 201305
  57. LEZEIRACETAM [Concomitant]
     Indication: Seizure
     Dates: start: 2017
  58. DULOXETINE [Concomitant]
     Active Substance: DULOXETINE
     Indication: Neuralgia
     Dates: start: 2016
  59. MEMANTINE [Concomitant]
     Active Substance: MEMANTINE
     Indication: Memory impairment
     Dates: start: 2019
  60. VITAMIN D [Concomitant]
     Active Substance: VITAMIN D NOS
     Indication: Supplementation therapy
  61. ROPINIROLE [Concomitant]
     Active Substance: ROPINIROLE
  62. ROSUVASTATIN [Concomitant]
     Active Substance: ROSUVASTATIN
     Indication: Blood cholesterol
     Dates: start: 2020
  63. LEVOTHYROXINE [Concomitant]
     Active Substance: LEVOTHYROXINE
     Indication: Thyroid disorder
     Dates: start: 2020
  64. CYANOCOBALAMIN [Concomitant]
     Active Substance: CYANOCOBALAMIN
  65. DARVON [Concomitant]
     Active Substance: PROPOXYPHENE HYDROCHLORIDE
  66. EFFEXOR [Concomitant]
     Active Substance: VENLAFAXINE HYDROCHLORIDE
  67. MICRO-K [Concomitant]
     Active Substance: POTASSIUM CHLORIDE
  68. XOPENEX [Concomitant]
     Active Substance: LEVALBUTEROL HYDROCHLORIDE
  69. TYLENOL [Concomitant]
     Active Substance: ACETAMINOPHEN
  70. ZOFRAN [Concomitant]
     Active Substance: ONDANSETRON HYDROCHLORIDE
  71. ZITHROMAX [Concomitant]
     Active Substance: AZITHROMYCIN DIHYDRATE
  72. PEPCID [Concomitant]
     Active Substance: FAMOTIDINE
  73. TRICOR [Concomitant]
     Active Substance: FENOFIBRATE
  74. ZOCOR [Concomitant]
     Active Substance: SIMVASTATIN
  75. CODEINE [Concomitant]
     Active Substance: CODEINE
  76. MEMANTINE [Concomitant]
     Active Substance: MEMANTINE
  77. MAGNESIUM OXIDE [Concomitant]
     Active Substance: MAGNESIUM OXIDE
     Indication: Cardiac disorder
     Route: 065
     Dates: start: 2015
  78. MAGNESIUM OXIDE [Concomitant]
     Active Substance: MAGNESIUM OXIDE
     Indication: Gastric disorder
     Route: 065
     Dates: start: 2015
  79. BACTROBAN [Concomitant]
     Active Substance: MUPIROCIN\MUPIROCIN CALCIUM
  80. FLUTICASONE [Concomitant]
     Active Substance: FLUTICASONE
  81. GABAPENTIN [Concomitant]
     Active Substance: GABAPENTIN
  82. COLACE [Concomitant]
     Active Substance: DOCUSATE SODIUM
  83. BENZONATATE [Concomitant]
     Active Substance: BENZONATATE
  84. DOXYCYCLINE HYCLATE [Concomitant]
     Active Substance: DOXYCYCLINE HYCLATE
  85. CHLORHEXIDINE [Concomitant]
     Active Substance: CHLORHEXIDINE
  86. TRAMADOL HCL [Concomitant]
     Active Substance: TRAMADOL HYDROCHLORIDE
  87. CLONAZEPAM [Concomitant]
     Active Substance: CLONAZEPAM

REACTIONS (6)
  - Renal failure [Not Recovered/Not Resolved]
  - Chronic kidney disease [Not Recovered/Not Resolved]
  - Acute kidney injury [Unknown]
  - Nephrogenic anaemia [Unknown]
  - Chronic kidney disease-mineral and bone disorder [Unknown]
  - Hyperkalaemia [Unknown]

NARRATIVE: CASE EVENT DATE: 20100722
